FAERS Safety Report 19525082 (Version 1)
Quarter: 2021Q3

REPORT INFORMATION
  Report Type: Spontaneous
  Country: CN (occurrence: CN)
  Receive Date: 20210712
  Receipt Date: 20210712
  Transmission Date: 20211014
  Serious: Yes (Other)
  Sender: FDA-Public Use
  Company Number: CN-BAXTER-2021BAX019774

PATIENT
  Age: 58 Year
  Sex: Female
  Weight: 57 kg

DRUGS (4)
  1. 0.9% SODIUM CHLORIDE INJECTION [Suspect]
     Active Substance: SODIUM CHLORIDE
     Indication: MEDICATION DILUTION
     Dosage: FIRST CYCLE OF EC CHEMOTHERAPY, 0.9% SODIUM CHLORIDE + CYCLOPHOSPHAMIDE 850 MG
     Route: 041
     Dates: start: 20210608, end: 20210608
  2. ENDOXAN [Suspect]
     Active Substance: CYCLOPHOSPHAMIDE
     Indication: BREAST CANCER
     Dosage: FIRST CYCLE OF EC CHEMOTHERAPY, CYCLOPHOSPHAMIDE + 0.9% SODIUM CHLORIDE 100 ML
     Route: 041
     Dates: start: 20210608, end: 20210608
  3. 0.9% SODIUM CHLORIDE INJECTION [Suspect]
     Active Substance: SODIUM CHLORIDE
     Dosage: FIRST CYCLE OF EC CHEMOTHERAPY, 0.9% SODIUM CHLORIDE + PHARMORUBICIN 145 MG
     Route: 041
     Dates: start: 20210608, end: 20210608
  4. PHARMORUBICIN [Suspect]
     Active Substance: EPIRUBICIN
     Indication: BREAST CANCER
     Dosage: FIRST CYCLE OF EC CHEMOTHERAPY, PHARMORUBICIN + 0.9% SODIUM CHLORIDE 250 ML
     Route: 041
     Dates: start: 20210608, end: 20210608

REACTIONS (2)
  - Agranulocytosis [Recovering/Resolving]
  - Pyrexia [Recovering/Resolving]

NARRATIVE: CASE EVENT DATE: 20210614
